FAERS Safety Report 6700095-6 (Version None)
Quarter: 2010Q2

REPORT INFORMATION
  Report Type: 
  Country: None (occurrence: None)
  Receive Date: 20100428
  Receipt Date: 20100415
  Transmission Date: 20101027
  Serious: Yes (Other)
  Sender: FDA-Public Use
  Company Number: FR-CELGENEUS-056-21880-10032904

PATIENT
  Age: 55 Year
  Sex: Male

DRUGS (3)
  1. REVLIMID [Suspect]
     Indication: MYELOMA RECURRENCE
     Route: 048
     Dates: start: 20000101
  2. REVLIMID [Suspect]
     Route: 048
     Dates: start: 20100101
  3. DEXAMETHASONE [Concomitant]
     Indication: MYELOMA RECURRENCE
     Route: 065

REACTIONS (1)
  - PREGNANCY OF PARTNER [None]
